FAERS Safety Report 14537898 (Version 2)
Quarter: 2018Q1

REPORT INFORMATION
  Report Type: Report from Study
  Country: DK (occurrence: DK)
  Receive Date: 20180216
  Receipt Date: 20180309
  Transmission Date: 20180509
  Serious: Yes (Hospitalization)
  Sender: FDA-Public Use
  Company Number: DK-ROCHE-2069258

PATIENT
  Age: 62 Year
  Sex: Male
  Weight: 125 kg

DRUGS (2)
  1. VENETOCLAX. [Suspect]
     Active Substance: VENETOCLAX
     Indication: CHRONIC LYMPHOCYTIC LEUKAEMIA
     Dosage: DOSE AS PER PROTOCOL: ORAL 20 MG (2 TABLET AT 10 MG), DAY (D) 22-28, Q28D (ONCE IN 28 DAYS), CYCLE 2
     Route: 065
     Dates: start: 20171108
  2. RITUXIMAB. [Suspect]
     Active Substance: RITUXIMAB
     Indication: CHRONIC LYMPHOCYTIC LEUKAEMIA
     Dosage: DATE OF LAST DOSE PRIOR TO SERIOUS ADVERSE EVENT : 10/JAN/2018?DOSE AS PER PROTOCOL: RITUXIMAB I.V.
     Route: 065
     Dates: start: 20171018

REACTIONS (1)
  - Influenza [Recovered/Resolved]

NARRATIVE: CASE EVENT DATE: 20180201
